FAERS Safety Report 5378200-6 (Version None)
Quarter: 2007Q3

REPORT INFORMATION
  Report Type: 
  Country: None (occurrence: None)
  Receive Date: 20070705
  Receipt Date: 20070626
  Transmission Date: 20080115
  Serious: Yes (Hospitalization)
  Sender: FDA-Public Use
  Company Number: US-JNJFOC-20070606623

PATIENT
  Sex: Male
  Weight: 70.31 kg

DRUGS (6)
  1. DURAGESIC-100 [Suspect]
     Dosage: EVERY 72 TO 96 HOURS
     Route: 062
  2. DURAGESIC-100 [Suspect]
     Dosage: 100UG/HR + 25UG/HR PATCHES
     Route: 062
  3. DURAGESIC-100 [Suspect]
     Indication: PAIN
     Dosage: 100UG/HR + 25UG/HR PATCHES
     Route: 062
  4. FENTANYL TRANSDERMAL SYSTEM [Suspect]
     Indication: PAIN
     Dosage: 100UG/HR +25UG/HR PATCHES
     Route: 062
  5. ZANAFLEX [Concomitant]
     Indication: MUSCLE RELAXANT THERAPY
     Route: 048
  6. PREVACID [Concomitant]
     Route: 048

REACTIONS (3)
  - DRUG EFFECT DECREASED [None]
  - HALLUCINATION [None]
  - INCORRECT DRUG ADMINISTRATION DURATION [None]
